FAERS Safety Report 11910670 (Version 1)
Quarter: 2016Q1

REPORT INFORMATION
  Report Type: Spontaneous
  Country: IT (occurrence: IT)
  Receive Date: 20160112
  Receipt Date: 20160112
  Transmission Date: 20160526
  Serious: Yes (Other)
  Sender: FDA-Public Use
  Company Number: IT-PFIZER INC-2016002974

PATIENT
  Age: 76 Year
  Sex: Male

DRUGS (10)
  1. AMIODAR [Suspect]
     Active Substance: AMIODARONE
     Dosage: 200 MG, DAILY
     Route: 048
  2. CONGESCOR [Concomitant]
     Active Substance: BISOPROLOL
     Dosage: UNK
  3. SIVASTIN [Interacting]
     Active Substance: SIMVASTATIN
     Dosage: 20 MG, DAILY
     Route: 048
  4. CARDURA [Concomitant]
     Active Substance: DOXAZOSIN MESYLATE
     Dosage: UNK
  5. CARDIOASPIRIN [Concomitant]
     Active Substance: ASPIRIN
     Dosage: UNK
  6. NORVASC [Interacting]
     Active Substance: AMLODIPINE BESYLATE
     Dosage: 5 MG, DAILY
     Route: 048
  7. LASIX [Concomitant]
     Active Substance: FUROSEMIDE
     Dosage: UNK
  8. DUROGESIC [Concomitant]
     Active Substance: FENTANYL
     Dosage: UNK
  9. OMEPRAZOLE. [Concomitant]
     Active Substance: OMEPRAZOLE
     Dosage: UNK
  10. DEPONIT [Concomitant]
     Active Substance: NITROGLYCERIN
     Dosage: UNK

REACTIONS (2)
  - Drug interaction [Unknown]
  - Back pain [Recovering/Resolving]

NARRATIVE: CASE EVENT DATE: 20150927
